FAERS Safety Report 6788828-4 (Version None)
Quarter: 2010Q2

REPORT INFORMATION
  Report Type: 
  Country: None (occurrence: None)
  Receive Date: 20100623
  Receipt Date: 20080523
  Transmission Date: 20101027
  Serious: No
  Sender: FDA-Public Use
  Company Number: US-PFIZER INC-2008044454

PATIENT
  Sex: Female
  Weight: 79.5 kg

DRUGS (3)
  1. GEODON [Suspect]
     Indication: BIPOLAR DISORDER
     Route: 048
     Dates: start: 20080201
  2. TOPAMAX [Interacting]
  3. ALCOHOL [Interacting]

REACTIONS (2)
  - DRUG INTERACTION [None]
  - MALAISE [None]
